FAERS Safety Report 17275532 (Version 1)
Quarter: 2020Q1

REPORT INFORMATION
  Report Type: Spontaneous
  Country: BE (occurrence: BE)
  Receive Date: 20200116
  Receipt Date: 20200116
  Transmission Date: 20200409
  Serious: Yes (Hospitalization)
  Sender: FDA-Public Use
  Company Number: BE-TEVA-2020-BE-1167146

PATIENT
  Sex: Female

DRUGS (1)
  1. DULOXETINE 60MG CAPSULE [Suspect]
     Active Substance: DULOXETINE HYDROCHLORIDE
     Dosage: 60 MILLIGRAM
     Route: 048
     Dates: start: 20190624, end: 20191202

REACTIONS (5)
  - Fall [Recovering/Resolving]
  - Blood pressure increased [Recovering/Resolving]
  - Dysarthria [Recovering/Resolving]
  - Hyperventilation [Recovering/Resolving]
  - Tremor [Recovering/Resolving]

NARRATIVE: CASE EVENT DATE: 20190610
